FAERS Safety Report 19064288 (Version 1)
Quarter: 2021Q1

REPORT INFORMATION
  Report Type: Spontaneous
  Country: GB (occurrence: GB)
  Receive Date: 20210326
  Receipt Date: 20210326
  Transmission Date: 20210420
  Serious: Yes (Disabling)
  Sender: FDA-Public Use
  Company Number: NVSC2021GB060259

PATIENT
  Age: 23 Year
  Sex: Female
  Weight: 60 kg

DRUGS (1)
  1. MOMETASONE FUROATE. [Suspect]
     Active Substance: MOMETASONE FUROATE
     Indication: ECZEMA
     Dosage: UNK
     Route: 061
     Dates: start: 20201106, end: 20201201

REACTIONS (2)
  - Dry skin [Not Recovered/Not Resolved]
  - Burning sensation [Not Recovered/Not Resolved]
